FAERS Safety Report 20470880 (Version 6)
Quarter: 2022Q2

REPORT INFORMATION
  Report Type: Report from Study
  Country: US (occurrence: US)
  Receive Date: 20220214
  Receipt Date: 20220531
  Transmission Date: 20220721
  Serious: Yes (Other)
  Sender: FDA-Public Use
  Company Number: US-NOVARTISTESTPH-NVSC2022US033441

PATIENT
  Sex: Female
  Weight: 49.53 kg

DRUGS (18)
  1. KESIMPTA [Suspect]
     Active Substance: OFATUMUMAB
     Indication: Multiple sclerosis
     Dosage: UNK
     Route: 065
     Dates: start: 20220211, end: 20220211
  2. KESIMPTA [Suspect]
     Active Substance: OFATUMUMAB
     Dosage: 20 MG
     Route: 058
  3. KESIMPTA [Suspect]
     Active Substance: OFATUMUMAB
     Dosage: UNK
     Route: 065
     Dates: end: 202202
  4. FLUOXETINE HYDROCHLORIDE [Suspect]
     Active Substance: FLUOXETINE HYDROCHLORIDE
     Indication: Product used for unknown indication
     Dosage: 1 DOSAGE FORM, QD
     Route: 048
  5. ESOMEPRAZOLE MAGNESIUM [Suspect]
     Active Substance: ESOMEPRAZOLE MAGNESIUM
     Indication: Product used for unknown indication
     Dosage: 1 DOSAGE FORM, QD
     Route: 048
  6. FLOMAX [Suspect]
     Active Substance: TAMSULOSIN HYDROCHLORIDE
     Indication: Product used for unknown indication
     Dosage: 1 DOSAGE FORM, QD
     Route: 048
  7. CHOLECALCIFEROL [Suspect]
     Active Substance: CHOLECALCIFEROL
     Indication: Product used for unknown indication
     Dosage: 2 DOSAGE FORM, QD (2000 UNIT)
     Route: 048
  8. METAMUCIL [Suspect]
     Active Substance: PLANTAGO SEED
     Indication: Product used for unknown indication
     Dosage: 48.57 %, PRN (POWDER)
     Route: 048
  9. COMBIGAN [Suspect]
     Active Substance: BRIMONIDINE TARTRATE\TIMOLOL MALEATE
     Indication: Product used for unknown indication
     Dosage: 1 DRP, BID (INTO THE AFFECTED EYE)
     Route: 047
  10. PRAVASTATIN SODIUM [Suspect]
     Active Substance: PRAVASTATIN SODIUM
     Indication: Product used for unknown indication
     Dosage: 0.5 DOSAGE FORM, QOD
     Route: 048
  11. MIRALAX [Suspect]
     Active Substance: POLYETHYLENE GLYCOL 3350
     Indication: Product used for unknown indication
     Dosage: UNK, QD (1 CAPFUL) (POWDER)
     Route: 048
  12. BACTRIM DS [Suspect]
     Active Substance: SULFAMETHOXAZOLE\TRIMETHOPRIM
     Indication: Product used for unknown indication
     Dosage: 1 DOSAGE FORM, BID (800-160 MG)
     Route: 048
  13. NITROFURANTOIN MONOHYDRATE MACROCRYSTALS [Suspect]
     Active Substance: NITROFURANTOIN\NITROFURANTOIN MONOHYDRATE
     Indication: Product used for unknown indication
     Dosage: 1 DOSAGE FORM, BID (1 CAPSULE AT BEDTIMES WITH FOOD)
     Route: 048
  14. REBIF [Suspect]
     Active Substance: INTERFERON BETA-1A
     Indication: Product used for unknown indication
     Dosage: UNK TOOK 1 YEARS
     Route: 065
  15. EZETIMIBE [Suspect]
     Active Substance: EZETIMIBE
     Indication: Product used for unknown indication
     Dosage: 1 DOSAGE FORM, QD
     Route: 048
  16. DIVALPROEX SODIUM [Concomitant]
     Active Substance: DIVALPROEX SODIUM
     Indication: Irritability
     Dosage: 125 MG 1 TABLET ORALLY TICE A DAY 90 DAYS , 180 TABLET REFILLSN3
     Route: 048
  17. DIVALPROEX SODIUM [Concomitant]
     Active Substance: DIVALPROEX SODIUM
     Indication: Anger
  18. AVONEX [Concomitant]
     Active Substance: INTERFERON BETA-1A
     Indication: Product used for unknown indication
     Dosage: UNK TOOK FOR 18 MONTHS
     Route: 065

REACTIONS (19)
  - Monoplegia [Recovered/Resolved]
  - Cystitis [Unknown]
  - Pain [Unknown]
  - Abdominal discomfort [Unknown]
  - Injection site haemorrhage [Unknown]
  - Headache [Unknown]
  - Injection site pain [Unknown]
  - Intervertebral disc degeneration [Unknown]
  - Hypoaesthesia [Unknown]
  - Muscular weakness [Unknown]
  - Gait disturbance [Unknown]
  - Asthenia [Unknown]
  - Spinal stenosis [Unknown]
  - Neuralgia [Unknown]
  - Balance disorder [Unknown]
  - Influenza like illness [Unknown]
  - Pyrexia [Unknown]
  - Chills [Unknown]
  - Paraesthesia [Unknown]
